FAERS Safety Report 16276664 (Version 1)
Quarter: 2019Q2

REPORT INFORMATION
  Report Type: Spontaneous
  Country: US (occurrence: US)
  Receive Date: 20190505
  Receipt Date: 20190505
  Transmission Date: 20190711
  Serious: No
  Sender: FDA-Public Use
  Company Number: None

PATIENT
  Age: 72 Year
  Sex: Female
  Weight: 75.6 kg

DRUGS (11)
  1. N-A-C BY WHOLE FOODS [Concomitant]
  2. 1 QUERETINE WITH BORMELAIN BY WHOLE FOODS [Concomitant]
  3. 1 CHERRY WORKS BY CHERRYMAX [Concomitant]
  4. 1 BILBERY BY WHOLW FOODS [Concomitant]
  5. 1 MEGAFOOD WOEMN OVER 40 SUPPLEMENT [Concomitant]
  6. 1 GARDEN OF LIFE TUMERIC [Concomitant]
  7. 1 MEGA FOOD TUMERIC STRENGTH FOR WHOLE [Concomitant]
  8. 1 FISH OIL [Concomitant]
  9. 1 GARDEN OF LIFE RAW CALCIUM [Concomitant]
  10. FORTEO [Suspect]
     Active Substance: TERIPARATIDE
     Indication: OSTEOPOROSIS
     Dosage: ?          OTHER STRENGTH:MCG;QUANTITY:1 INJECTION(S);OTHER ROUTE:INJECTION?
     Dates: start: 20190402, end: 20190430
  11. 1ACETYL L-CARNITINE BY WHOLE FOODS [Concomitant]

REACTIONS (2)
  - Blood pressure increased [None]
  - Tachycardia [None]

NARRATIVE: CASE EVENT DATE: 20190430
